FAERS Safety Report 7562405-X (Version None)
Quarter: 2011Q2

REPORT INFORMATION
  Report Type: 
  Country: None (occurrence: None)
  Receive Date: 20110614
  Receipt Date: 20110531
  Transmission Date: 20111010
  Serious: Yes (Hospitalization)
  Sender: FDA-Public Use
  Company Number: 2011MA006588

PATIENT
  Age: 55 Year
  Sex: Male

DRUGS (6)
  1. CITALOPRAM HYDROBROMIDE [Suspect]
  2. VERPAMIL HCL [Concomitant]
  3. HYDROCONE ACETAMINOPHEN [Concomitant]
  4. ATORVASTATIN [Concomitant]
  5. METAXALONE [Concomitant]
  6. ACETAMINOPHEN [Concomitant]

REACTIONS (6)
  - VOMITING [None]
  - CEREBRAL VASOCONSTRICTION [None]
  - HEADACHE [None]
  - SUBARACHNOID HAEMORRHAGE [None]
  - NAUSEA [None]
  - PHOTOPHOBIA [None]
